FAERS Safety Report 18446141 (Version 1)
Quarter: 2020Q4

REPORT INFORMATION
  Report Type: Spontaneous
  Country: US (occurrence: US)
  Receive Date: 20201030
  Receipt Date: 20201030
  Transmission Date: 20210114
  Serious: Yes (Other)
  Sender: FDA-Public Use
  Company Number: US-TEVA-2020-US-1843110

PATIENT

DRUGS (1)
  1. IFOSFAMIDE. [Suspect]
     Active Substance: IFOSFAMIDE
     Route: 065

REACTIONS (1)
  - Neurotoxicity [Unknown]
